FAERS Safety Report 7501112-6 (Version None)
Quarter: 2011Q2

REPORT INFORMATION
  Report Type: 
  Country: None (occurrence: None)
  Receive Date: 20110524
  Receipt Date: 20110518
  Transmission Date: 20111010
  Serious: Yes (Hospitalization)
  Sender: FDA-Public Use
  Company Number: RO-GENZYME-CAMP-1001629

PATIENT
  Sex: Female
  Weight: 58 kg

DRUGS (3)
  1. CAMPATH [Suspect]
     Indication: CHRONIC LYMPHOCYTIC LEUKAEMIA
     Dosage: 30 UNK, UNK
     Route: 058
     Dates: start: 20110406, end: 20110505
  2. NEUPOGEN [Concomitant]
     Indication: NEUTROPENIA
     Dosage: 30 UNK, UNK
     Route: 065
  3. PIPERACILLIN [Concomitant]
     Indication: PROPHYLAXIS
     Dosage: 4.5 G, TID
     Route: 065

REACTIONS (4)
  - PYREXIA [None]
  - CYTOMEGALOVIRUS INFECTION [None]
  - INTERSTITIAL LUNG DISEASE [None]
  - COUGH [None]
